FAERS Safety Report 4550700-8 (Version None)
Quarter: 2004Q4

REPORT INFORMATION
  Report Type: 
  Country: None (occurrence: None)
  Receive Date: 20041217
  Receipt Date: 20041021
  Transmission Date: 20050328
  Serious: No
  Sender: FDA-Public Use
  Company Number: 2004-BP-10647BP(0)

PATIENT
  Age: 65 Year
  Sex: Female

DRUGS (8)
  1. SPIRIVA [Suspect]
     Indication: CHRONIC OBSTRUCTIVE AIRWAYS DISEASE
     Dosage: 18 MCG (18 MCG ) IH
     Route: 025
     Dates: start: 20040915, end: 20041020
  2. ALBUTEROL [Suspect]
     Indication: CHRONIC OBSTRUCTIVE AIRWAYS DISEASE
     Dosage: 2 PUF (NR) IH
     Route: 055
     Dates: start: 20040915
  3. CLONIDINE [Suspect]
     Indication: HYPERTENSION
     Dosage: PO
     Route: 048
  4. NAPROXEN [Suspect]
     Indication: ARTHRITIS
     Dosage: PO
     Route: 048
     Dates: start: 20040930
  5. ACETYLSALICYLIC ACID SRT [Suspect]
     Route: 048
  6. HYZAAR [Concomitant]
  7. VERAPAMIL [Concomitant]
  8. VIOXX [Concomitant]

REACTIONS (7)
  - CONSTIPATION [None]
  - DRY MOUTH [None]
  - OEDEMA MOUTH [None]
  - RASH [None]
  - STOMATITIS [None]
  - SWELLING FACE [None]
  - TONGUE DRY [None]
